FAERS Safety Report 20804996 (Version 1)
Quarter: 2022Q2

REPORT INFORMATION
  Report Type: Spontaneous
  Country: ES (occurrence: ES)
  Receive Date: 20220509
  Receipt Date: 20220509
  Transmission Date: 20220721
  Serious: Yes (Disabling, Other)
  Sender: FDA-Public Use
  Company Number: ES-Fresenius Kabi-FK202205279

PATIENT
  Age: 53 Year
  Sex: Male

DRUGS (3)
  1. LIDOCAINE [Suspect]
     Active Substance: LIDOCAINE
     Indication: Anaesthesia procedure
     Dosage: 4 ML OF A MIXTURE OF BUPIVACAINE 0.75 PERCENT + LIDOCAINE 5 PERCENT + HYALURONIDASE 150 IU
  2. BUPIVACAINE [Suspect]
     Active Substance: BUPIVACAINE
     Indication: Anaesthesia procedure
     Dosage: 4 ML OF A MIXTURE OF BUPIVACAINE 0.75 PERCENT + LIDOCAINE 5 PERCENT + HYALURONIDASE 150 IU
  3. HYALURONIDASE [Suspect]
     Active Substance: HYALURONIDASE
     Indication: Anaesthesia procedure
     Dosage: 4 ML OF A MIXTURE OF BUPIVACAINE 0.75 PERCENT + LIDOCAINE 5 PERCENT + HYALURONIDASE 150 IU

REACTIONS (1)
  - Acute macular neuroretinopathy [Recovered/Resolved with Sequelae]
